FAERS Safety Report 16043458 (Version 4)
Quarter: 2019Q2

REPORT INFORMATION
  Report Type: Spontaneous
  Country: JP (occurrence: JP)
  Receive Date: 20190306
  Receipt Date: 20190426
  Transmission Date: 20190711
  Serious: Yes (Hospitalization)
  Sender: FDA-Public Use
  Company Number: JP-JNJFOC-20190241099

PATIENT
  Age: 44 Year
  Sex: Male
  Weight: 76 kg

DRUGS (11)
  1. RISPERDAL [Suspect]
     Active Substance: RISPERIDONE
     Indication: SCHIZOPHRENIA
     Route: 048
  2. AKINETON [Concomitant]
     Active Substance: BIPERIDEN HYDROCHLORIDE
     Route: 048
     Dates: start: 20081102
  3. DIAZEPAM. [Concomitant]
     Active Substance: DIAZEPAM
     Route: 048
     Dates: start: 20091020, end: 20111002
  4. LANDSEN [Concomitant]
     Active Substance: CLONAZEPAM
     Route: 048
     Dates: start: 20091104, end: 20110221
  5. QUAZEPAM. [Concomitant]
     Active Substance: QUAZEPAM
     Route: 048
     Dates: start: 20100401, end: 20101129
  6. HALOPERIDOL. [Concomitant]
     Active Substance: HALOPERIDOL
     Indication: SCHIZOPHRENIA
     Route: 030
  7. SEROQUEL [Concomitant]
     Active Substance: QUETIAPINE FUMARATE
     Indication: SCHIZOPHRENIA
     Route: 048
     Dates: start: 20100317, end: 20111031
  8. ZYPREXA [Concomitant]
     Active Substance: OLANZAPINE
     Route: 048
     Dates: start: 20100326, end: 20150512
  9. SODIUM VALPROATE [Concomitant]
     Active Substance: VALPROATE SODIUM
     Route: 048
     Dates: start: 20100202, end: 20110906
  10. FLUNITRAZEPAM [Concomitant]
     Active Substance: FLUNITRAZEPAM
     Route: 048
     Dates: start: 20081102
  11. SLOWHEIM [Concomitant]
     Active Substance: ZOPICLONE
     Route: 048
     Dates: start: 20090724, end: 20101130

REACTIONS (6)
  - Dopamine dysregulation syndrome [Recovering/Resolving]
  - Irritability [Recovering/Resolving]
  - Impulse-control disorder [Unknown]
  - Inappropriate schedule of product administration [Unknown]
  - Aggression [Recovering/Resolving]
  - Off label use [Unknown]

NARRATIVE: CASE EVENT DATE: 20100817
